FAERS Safety Report 9366071 (Version 1)
Quarter: 2013Q2

REPORT INFORMATION
  Report Type: Spontaneous
  Country: FR (occurrence: FR)
  Receive Date: 20130625
  Receipt Date: 20130625
  Transmission Date: 20140414
  Serious: Yes (Death)
  Sender: FDA-Public Use
  Company Number: FR-TEVA-414636ISR

PATIENT
  Age: 64 Year
  Sex: Male

DRUGS (1)
  1. FUROSEMIDE [Suspect]
     Dosage: TOTAL : 2 TABLETS INGESTED
     Dates: end: 20130324

REACTIONS (1)
  - Cardiac arrest [Fatal]
